FAERS Safety Report 7947083-X (Version None)
Quarter: 2011Q4

REPORT INFORMATION
  Report Type: 
  Country: None (occurrence: None)
  Receive Date: 20111129
  Receipt Date: 20110726
  Transmission Date: 20120403
  Serious: No
  Sender: FDA-Public Use
  Company Number: US-ASTRAZENECA-2011SE39335

PATIENT
  Age: 85 Year
  Sex: Male
  Weight: 68 kg

DRUGS (1)
  1. VIMOVO [Suspect]
     Indication: RHEUMATOID ARTHRITIS
     Dosage: 500/20 MG, EVERY DAY
     Route: 048
     Dates: start: 20110624

REACTIONS (3)
  - HEADACHE [None]
  - DRUG INEFFECTIVE [None]
  - STRESS [None]
